FAERS Safety Report 10627303 (Version 1)
Quarter: 2014Q4

REPORT INFORMATION
  Report Type: Spontaneous
  Country: US (occurrence: US)
  Receive Date: 20141204
  Receipt Date: 20141204
  Transmission Date: 20150529
  Serious: Yes (Hospitalization)
  Sender: FDA-Public Use
  Company Number: US-009507513-1412USA001178

PATIENT
  Age: 83 Year
  Sex: Male

DRUGS (1)
  1. PROVENTIL [Suspect]
     Active Substance: ALBUTEROL
     Dosage: FOUR PUFFS DAILY
     Route: 055

REACTIONS (5)
  - Adverse event [Unknown]
  - Product quality issue [Unknown]
  - Throat irritation [Recovering/Resolving]
  - Speech disorder [Recovering/Resolving]
  - Dysphonia [Unknown]

NARRATIVE: CASE EVENT DATE: 20141128
